FAERS Safety Report 13193394 (Version 2)
Quarter: 2017Q1

REPORT INFORMATION
  Report Type: Report from Study
  Country: None (occurrence: US)
  Receive Date: 20170207
  Receipt Date: 20170211
  Transmission Date: 20170428
  Serious: Yes (Other)
  Sender: FDA-Public Use
  Company Number: US-ABBVIE-17K-163-1855828-00

PATIENT
  Sex: Female

DRUGS (1)
  1. HUMIRA [Suspect]
     Active Substance: ADALIMUMAB
     Indication: HIDRADENITIS
     Route: 058

REACTIONS (5)
  - Feeling abnormal [Recovered/Resolved]
  - Acne [Recovered/Resolved]
  - Hyperhidrosis [Recovering/Resolving]
  - Dacryocystorhinostomy [Recovered/Resolved]
  - Eye inflammation [Recovered/Resolved]
